FAERS Safety Report 18783778 (Version 1)
Quarter: 2021Q1

REPORT INFORMATION
  Report Type: Spontaneous
  Country: US (occurrence: US)
  Receive Date: 20210125
  Receipt Date: 20210125
  Transmission Date: 20210419
  Serious: Yes (Death)
  Sender: FDA-Public Use
  Company Number: US-INTRA-CELLULAR THERAPIES, INC.-2021ICT00029

PATIENT

DRUGS (1)
  1. CAPLYTA [Suspect]
     Active Substance: LUMATEPERONE
     Indication: SCHIZOAFFECTIVE DISORDER
     Dosage: 42 MG, 1X/DAY
     Route: 048
     Dates: start: 2020, end: 202101

REACTIONS (3)
  - Post-traumatic stress disorder [Unknown]
  - Completed suicide [Fatal]
  - Off label use [Recovered/Resolved]

NARRATIVE: CASE EVENT DATE: 202101
